FAERS Safety Report 6630238-4 (Version None)
Quarter: 2010Q1

REPORT INFORMATION
  Report Type: 
  Country: None (occurrence: None)
  Receive Date: 20100311
  Receipt Date: 20100308
  Transmission Date: 20100710
  Serious: Yes (Hospitalization)
  Sender: FDA-Public Use
  Company Number: A0849548A

PATIENT
  Age: 50 Year
  Sex: Female
  Weight: 95.5 kg

DRUGS (1)
  1. AVANDIA [Suspect]
     Dosage: 8MG PER DAY
     Route: 048
     Dates: start: 20050401, end: 20060123

REACTIONS (5)
  - ARRHYTHMIA [None]
  - BLOOD GLUCOSE ABNORMAL [None]
  - CORONARY ARTERY DISEASE [None]
  - DRUG INEFFECTIVE [None]
  - MYOCARDIAL INFARCTION [None]
